FAERS Safety Report 6375184-9 (Version None)
Quarter: 2009Q3

REPORT INFORMATION
  Report Type: 
  Country: None (occurrence: None)
  Receive Date: 20090922
  Receipt Date: 20090922
  Transmission Date: 20100115
  Serious: Yes (Hospitalization)
  Sender: FDA-Public Use
  Company Number: None

PATIENT
  Age: 55 Year
  Sex: Male
  Weight: 117 kg

DRUGS (1)
  1. BACLOFEN [Suspect]
     Indication: PAIN
     Dosage: 20 MG TID PO
     Route: 048
     Dates: start: 20090911, end: 20090916

REACTIONS (2)
  - MENTAL STATUS CHANGES [None]
  - SEDATION [None]
